FAERS Safety Report 20471210 (Version 1)
Quarter: 2022Q1

REPORT INFORMATION
  Report Type: Spontaneous
  Country: JP (occurrence: JP)
  Receive Date: 20220214
  Receipt Date: 20220214
  Transmission Date: 20220423
  Serious: Yes (Other)
  Sender: FDA-Public Use
  Company Number: JP-shionogi-202115902_MUL_P_1

PATIENT
  Age: 50 Year
  Sex: Male

DRUGS (1)
  1. MULPLETA [Suspect]
     Active Substance: LUSUTROMBOPAG
     Indication: Thrombocytopenia
     Dosage: 3 MG, QD
     Route: 048

REACTIONS (1)
  - Haemothorax [Recovered/Resolved]
